FAERS Safety Report 17367858 (Version 1)
Quarter: 2020Q1

REPORT INFORMATION
  Report Type: Spontaneous
  Country: US (occurrence: US)
  Receive Date: 20200204
  Receipt Date: 20200204
  Transmission Date: 20200409
  Serious: Yes (Other)
  Sender: FDA-Public Use
  Company Number: US-BRISTOL-MYERS SQUIBB COMPANY-BMS-2020-008934

PATIENT
  Age: 88 Year
  Sex: Male

DRUGS (1)
  1. IPILIMUMAB [Suspect]
     Active Substance: IPILIMUMAB
     Indication: MALIGNANT MELANOMA
     Dosage: 3 MILLIGRAM/KILOGRAM
     Route: 065

REACTIONS (5)
  - Fatigue [Unknown]
  - Hyperthyroidism [Recovered/Resolved]
  - Rash morbilliform [Unknown]
  - Pruritus [Unknown]
  - Alopecia areata [Unknown]
